FAERS Safety Report 16987159 (Version 1)
Quarter: 2019Q4

REPORT INFORMATION
  Report Type: Spontaneous
  Country: US (occurrence: US)
  Receive Date: 20190918
  Receipt Date: 20190918
  Transmission Date: 20200122
  Serious: Yes (Hospitalization)
  Sender: FDA-Public Use
  Company Number: None

PATIENT
  Age: 53 Year
  Sex: Male
  Weight: 147.87 kg

DRUGS (1)
  1. ORITAVANCIN. [Suspect]
     Active Substance: ORITAVANCIN
     Indication: POSTOPERATIVE WOUND INFECTION
     Route: 042
     Dates: start: 20190820, end: 20190820

REACTIONS (7)
  - Tachycardia [None]
  - Pyrexia [None]
  - Palpitations [None]
  - Dyspnoea [None]
  - Tremor [None]
  - Chills [None]
  - Hypoxia [None]

NARRATIVE: CASE EVENT DATE: 20190820
